FAERS Safety Report 14893343 (Version 1)
Quarter: 2018Q2

REPORT INFORMATION
  Report Type: Report from Study
  Country: CA (occurrence: CA)
  Receive Date: 20180514
  Receipt Date: 20180514
  Transmission Date: 20180711
  Serious: Yes (Congenital Anomaly)
  Sender: FDA-Public Use
  Company Number: CA-JNJFOC-20180510204

PATIENT
  Sex: Female
  Weight: 2.84 kg

DRUGS (1)
  1. REMICADE [Suspect]
     Active Substance: INFLIXIMAB
     Indication: CROHN^S DISEASE
     Dosage: MOTHER^S DOSING
     Route: 064

REACTIONS (2)
  - Pupillary disorder [Unknown]
  - Foetal exposure during pregnancy [Recovered/Resolved]
